FAERS Safety Report 17447051 (Version 1)
Quarter: 2020Q1

REPORT INFORMATION
  Report Type: Spontaneous
  Country: US (occurrence: US)
  Receive Date: 20200221
  Receipt Date: 20200221
  Transmission Date: 20200409
  Serious: Yes (Hospitalization)
  Sender: FDA-Public Use
  Company Number: US-TEVA-2020-US-1188964

PATIENT
  Age: 74 Year
  Sex: Male

DRUGS (1)
  1. BUSPIRONE HYDROCHLORIDE. [Suspect]
     Active Substance: BUSPIRONE HYDROCHLORIDE
     Dates: start: 20191122, end: 201911

REACTIONS (8)
  - Headache [Recovered/Resolved]
  - Poor quality sleep [Unknown]
  - Fatigue [Unknown]
  - Dizziness [Recovered/Resolved]
  - Dysarthria [Not Recovered/Not Resolved]
  - Miosis [Not Recovered/Not Resolved]
  - Restless legs syndrome [Not Recovered/Not Resolved]
  - Insomnia [Not Recovered/Not Resolved]

NARRATIVE: CASE EVENT DATE: 20191122
